FAERS Safety Report 23198499 (Version 1)
Quarter: 2023Q4

REPORT INFORMATION
  Report Type: Spontaneous
  Country: IT (occurrence: IT)
  Receive Date: 20231117
  Receipt Date: 20231117
  Transmission Date: 20240109
  Serious: Yes (Other)
  Sender: FDA-Public Use
  Company Number: IT-drreddys-LIT/ITL/23/0183448

PATIENT
  Age: 55 Year
  Sex: Male

DRUGS (3)
  1. PEMETREXED [Suspect]
     Active Substance: PEMETREXED
     Indication: Lung adenocarcinoma
     Dates: start: 201808
  2. CISPLATIN [Suspect]
     Active Substance: CISPLATIN
     Indication: Lung adenocarcinoma
  3. CARBOPLATIN [Concomitant]
     Active Substance: CARBOPLATIN
     Indication: Lung adenocarcinoma

REACTIONS (4)
  - Hypercreatininaemia [Unknown]
  - Skin toxicity [Unknown]
  - Fluid retention [Unknown]
  - Ototoxicity [Unknown]
